FAERS Safety Report 7642427-0 (Version None)
Quarter: 2011Q3

REPORT INFORMATION
  Report Type: 
  Country: None (occurrence: None)
  Receive Date: 20110728
  Receipt Date: 20101228
  Transmission Date: 20111222
  Serious: No
  Sender: FDA-Public Use
  Company Number: US-MYLANLABS-2010S1022133

PATIENT
  Age: 63 Year
  Sex: Female

DRUGS (2)
  1. LEVOTHYROXINE SODIUM [Suspect]
     Route: 048
  2. LEVOTHYROXINE SODIUM [Suspect]
     Route: 048
     Dates: start: 20091001

REACTIONS (3)
  - HYPERTHYROIDISM [None]
  - BLOOD THYROID STIMULATING HORMONE INCREASED [None]
  - THYROXINE INCREASED [None]
